FAERS Safety Report 24874680 (Version 1)
Quarter: 2025Q1

REPORT INFORMATION
  Report Type: Spontaneous
  Country: US (occurrence: US)
  Receive Date: 20250122
  Receipt Date: 20250122
  Transmission Date: 20250409
  Serious: Yes (Hospitalization, Other)
  Sender: PFIZER
  Company Number: US-PFIZER INC-202500013083

PATIENT
  Age: 70 Year
  Sex: Female

DRUGS (12)
  1. TUKYSA [Suspect]
     Active Substance: TUCATINIB
     Indication: Breast cancer metastatic
     Dosage: 300MG ORALLY EVERY 12 HOURS
     Route: 048
  2. PACLITAXEL [Suspect]
     Active Substance: PACLITAXEL
     Indication: Breast cancer metastatic
     Dates: start: 20230210
  3. CAPECITABINE [Suspect]
     Active Substance: CAPECITABINE
     Indication: Breast cancer metastatic
  4. HERCEPTIN [Suspect]
     Active Substance: TRASTUZUMAB
     Indication: Breast cancer metastatic
     Dates: start: 20230203, end: 20230608
  5. TAXOL [Suspect]
     Active Substance: PACLITAXEL
     Indication: Breast cancer metastatic
     Dosage: UNK, WEEKLY
     Dates: start: 20230203, end: 20230817
  6. LACTULOSE [Suspect]
     Active Substance: LACTULOSE
     Indication: Hyperammonaemia
  7. LACTULOSE [Suspect]
     Active Substance: LACTULOSE
  8. PERJETA [Suspect]
     Active Substance: PERTUZUMAB
     Indication: Breast cancer metastatic
     Dates: end: 20230608
  9. XELODA [Suspect]
     Active Substance: CAPECITABINE
     Indication: Breast cancer metastatic
     Dosage: 2 IN THE AM AND 2 IN THE PM
     Dates: start: 202310
  10. ZOMETA [Suspect]
     Active Substance: ZOLEDRONIC ACID
     Dosage: UNK, EVERY 3 MONTHS
  11. IRON [Suspect]
     Active Substance: IRON
     Route: 048
  12. KEPPRA [Suspect]
     Active Substance: LEVETIRACETAM

REACTIONS (42)
  - Asthenia [Unknown]
  - Back pain [Unknown]
  - Gait disturbance [Unknown]
  - Thoracic vertebral fracture [Unknown]
  - Lumbar vertebral fracture [Unknown]
  - Multiple fractures [Unknown]
  - Blood thyroid stimulating hormone increased [Unknown]
  - Multiple sclerosis [Unknown]
  - Brain oedema [Unknown]
  - Osteomyelitis [Unknown]
  - Ascites [Unknown]
  - Hypothyroidism [Unknown]
  - Cardiac failure [Unknown]
  - Osteolysis [Unknown]
  - Lethargy [Unknown]
  - Condition aggravated [Unknown]
  - Gait inability [Unknown]
  - Hepatic lesion [Unknown]
  - Hepatomegaly [Unknown]
  - Blood calcium increased [Recovering/Resolving]
  - Blood albumin decreased [Unknown]
  - Calcium ionised increased [Unknown]
  - White blood cell count increased [Recovering/Resolving]
  - Mental disorder [Unknown]
  - Pleural effusion [Unknown]
  - Hypertransaminasaemia [Unknown]
  - Hypoaesthesia [Unknown]
  - Paraesthesia [Unknown]
  - Scalp haematoma [Unknown]
  - Ejection fraction decreased [Unknown]
  - Cardiac disorder [Unknown]
  - Dilatation atrial [Unknown]
  - Hepatic cyst [Unknown]
  - Vascular calcification [Unknown]
  - Mass [Unknown]
  - Nervous system disorder [Unknown]
  - Ischaemia [Unknown]
  - Confusional state [Not Recovered/Not Resolved]
  - Platelet count decreased [Unknown]
  - Haemoglobin decreased [Unknown]
  - Dyskinesia [Unknown]
  - Off label use [Unknown]

NARRATIVE: CASE EVENT DATE: 20230101
